FAERS Safety Report 19756695 (Version 1)
Quarter: 2021Q3

REPORT INFORMATION
  Report Type: Spontaneous
  Country: JP (occurrence: JP)
  Receive Date: 20210827
  Receipt Date: 20210827
  Transmission Date: 20211014
  Serious: Yes (Other)
  Sender: FDA-Public Use
  Company Number: NVSC2021JP130924

PATIENT
  Age: 81 Year
  Sex: Male

DRUGS (1)
  1. RIVASTACH [Suspect]
     Active Substance: RIVASTIGMINE
     Indication: DEMENTIA ALZHEIMER^S TYPE
     Dosage: UNK
     Route: 062

REACTIONS (11)
  - Dizziness [Unknown]
  - Musculoskeletal disorder [Unknown]
  - Personality disorder [Unknown]
  - Feeling hot [Unknown]
  - Diffusion-weighted brain MRI abnormal [Unknown]
  - Subarachnoid haemorrhage [Unknown]
  - Hypoaesthesia [Unknown]
  - Pollakiuria [Unknown]
  - Blood pressure decreased [Unknown]
  - Weight decreased [Unknown]
  - Wrong technique in product usage process [Unknown]

NARRATIVE: CASE EVENT DATE: 202106
